FAERS Safety Report 4592711-2 (Version None)
Quarter: 2005Q1

REPORT INFORMATION
  Report Type: 
  Country: None (occurrence: None)
  Receive Date: 20050228
  Receipt Date: 20050217
  Transmission Date: 20050727
  Serious: Yes (Other)
  Sender: FDA-Public Use
  Company Number: AU-AMGEN-US110027

PATIENT
  Sex: Female

DRUGS (2)
  1. ARANESP [Suspect]
     Indication: DIALYSIS
     Route: 042
     Dates: start: 20040401
  2. EPREX [Suspect]
     Indication: DIALYSIS
     Route: 042
     Dates: start: 20011101, end: 20040401

REACTIONS (4)
  - BONE MARROW DEPRESSION [None]
  - DRUG INEFFECTIVE [None]
  - HAEMODIALYSIS [None]
  - THERAPY NON-RESPONDER [None]
